FAERS Safety Report 8033160-4 (Version None)
Quarter: 2012Q1

REPORT INFORMATION
  Report Type: 
  Country: None (occurrence: None)
  Receive Date: 20120110
  Receipt Date: 20120110
  Transmission Date: 20120608
  Serious: No
  Sender: FDA-Public Use
  Company Number: None

PATIENT
  Age: 75 Year
  Sex: Female
  Weight: 81.646 kg

DRUGS (1)
  1. EXCEDRIN (MIGRAINE) [Suspect]
     Indication: FIBROMYALGIA
     Dosage: 2 TABS
     Dates: start: 20120101, end: 20120110

REACTIONS (3)
  - FLUID RETENTION [None]
  - CHOKING [None]
  - OEDEMA PERIPHERAL [None]
